FAERS Safety Report 5805823-X (Version None)
Quarter: 2008Q3

REPORT INFORMATION
  Report Type: 
  Country: None (occurrence: None)
  Receive Date: 20080710
  Receipt Date: 20080702
  Transmission Date: 20090109
  Serious: Yes (Other)
  Sender: FDA-Public Use
  Company Number: US-WYE-H04822908

PATIENT
  Sex: Female

DRUGS (2)
  1. EFFEXOR XR [Suspect]
     Indication: DEPRESSION
     Dosage: ^OVER 300 MG DAILY^
     Route: 048
     Dates: start: 20060101, end: 20070101
  2. EFFEXOR XR [Suspect]
     Dosage: ^75 MG LESS EACH WEEK^
     Route: 048
     Dates: start: 20070101, end: 20071201

REACTIONS (4)
  - CRYING [None]
  - DRUG WITHDRAWAL SYNDROME [None]
  - EMOTIONAL DISORDER [None]
  - PARAESTHESIA [None]
